FAERS Safety Report 7199817-2 (Version None)
Quarter: 2010Q4

REPORT INFORMATION
  Report Type: 
  Country: None (occurrence: None)
  Receive Date: 20101228
  Receipt Date: 20101222
  Transmission Date: 20110411
  Serious: No
  Sender: FDA-Public Use
  Company Number: US-PFIZER INC-2010177887

PATIENT
  Sex: Male
  Weight: 74.83 kg

DRUGS (1)
  1. TIKOSYN [Suspect]
     Indication: CARDIAC FAILURE CONGESTIVE
     Dosage: 500 UG, 2X/DAY
     Route: 048
     Dates: start: 20050101

REACTIONS (6)
  - DEPRESSION [None]
  - DIZZINESS [None]
  - DRUG INTOLERANCE [None]
  - FALL [None]
  - HYPOKINESIA [None]
  - TINNITUS [None]
